FAERS Safety Report 6588926-4 (Version None)
Quarter: 2010Q1

REPORT INFORMATION
  Report Type: 
  Country: None (occurrence: None)
  Receive Date: 20100218
  Receipt Date: 20100208
  Transmission Date: 20100710
  Serious: Yes (Other)
  Sender: FDA-Public Use
  Company Number: DE-JNJFOC-20100110578

PATIENT
  Age: 63 Year
  Sex: Female

DRUGS (10)
  1. REMICADE [Suspect]
     Indication: RHEUMATOID ARTHRITIS
     Route: 042
  2. REMICADE [Suspect]
     Route: 042
  3. METHOTREXATE [Suspect]
     Indication: RHEUMATOID ARTHRITIS
  4. METHOTREXATE [Suspect]
  5. METHOTREXATE [Suspect]
  6. FOLSAN [Concomitant]
  7. OMEPRAZOLE [Concomitant]
  8. OSSOFORTIN [Concomitant]
  9. CONCOR [Concomitant]
  10. AMEU [Concomitant]

REACTIONS (1)
  - DYSGEUSIA [None]
